FAERS Safety Report 21020529 (Version 1)
Quarter: 2022Q2

REPORT INFORMATION
  Report Type: Spontaneous
  Country: IL (occurrence: None)
  Receive Date: 20220629
  Receipt Date: 20220629
  Transmission Date: 20220721
  Serious: Yes (Other)
  Sender: FDA-Public Use
  Company Number: IL-ROCHE-3118080

PATIENT
  Age: 46 Year
  Sex: Female

DRUGS (1)
  1. XELODA [Suspect]
     Active Substance: CAPECITABINE
     Indication: Breast cancer
     Route: 048

REACTIONS (5)
  - Fatigue [Unknown]
  - Weight increased [Unknown]
  - Menstruation irregular [Unknown]
  - Intestinal metastasis [Unknown]
  - Metastases to liver [Unknown]

NARRATIVE: CASE EVENT DATE: 20211001
